FAERS Safety Report 9990756 (Version 1)
Quarter: 2014Q1

REPORT INFORMATION
  Report Type: Spontaneous
  Country: US (occurrence: None)
  Receive Date: 20140123
  Receipt Date: 20140123
  Transmission Date: 20141002
  Serious: Yes (Hospitalization)
  Sender: FDA-Public Use
  Company Number: UTC-035918

PATIENT
  Age: 56 Year
  Sex: Female
  Weight: 90.9 kg

DRUGS (2)
  1. REMODULIN (10 MILLIGRAM/MILLILITERS, INJECTION FOR INFUSION) (TREPROSTINIL SODIUM) [Suspect]
     Indication: PULMONARY ARTERIAL HYPERTENSION
     Dosage: 48.96 UG/KG (0.034 UG/KG, 1 IN 1 MIN), SUBCUTANEOUS
     Dates: start: 20120921, end: 201307
  2. LETAIRIS (AMBRISENTAN) (TABLET) (AMBRISENTAN) [Suspect]
     Indication: PULMONARY ARTERIAL HYPERTENSION
     Route: 048
     Dates: start: 20130329

REACTIONS (3)
  - Infusion site pain [None]
  - Infusion site vesicles [None]
  - Device dislocation [None]
